FAERS Safety Report 15157422 (Version 2)
Quarter: 2018Q3

REPORT INFORMATION
  Report Type: Report from Study
  Country: US (occurrence: US)
  Receive Date: 20180718
  Receipt Date: 20180720
  Transmission Date: 20181010
  Serious: Yes (Other)
  Sender: FDA-Public Use
  Company Number: US-AMGEN-USASL2018084446

PATIENT
  Age: 71 Year
  Sex: Female

DRUGS (1)
  1. REPATHA [Suspect]
     Active Substance: EVOLOCUMAB
     Indication: HYPERCHOLESTEROLAEMIA
     Dosage: 420 MG, QMO
     Route: 065

REACTIONS (8)
  - Malaise [Recovering/Resolving]
  - Dysphonia [Unknown]
  - Hair growth abnormal [Unknown]
  - Alopecia [Recovered/Resolved]
  - Pruritus [Unknown]
  - Road traffic accident [Unknown]
  - Rash generalised [Unknown]
  - Paraesthesia [Unknown]

NARRATIVE: CASE EVENT DATE: 201805
